FAERS Safety Report 22372477 (Version 1)
Quarter: 2023Q2

REPORT INFORMATION
  Report Type: Spontaneous
  Country: US (occurrence: US)
  Receive Date: 20230526
  Receipt Date: 20230526
  Transmission Date: 20230721
  Serious: No
  Sender: FDA-Public Use
  Company Number: US-GSK-US2023AMR071289

PATIENT
  Age: 73 Year
  Sex: Female
  Weight: 58.06 kg

DRUGS (2)
  1. SUMATRIPTAN SUCCINATE [Suspect]
     Active Substance: SUMATRIPTAN SUCCINATE
     Indication: Migraine
     Dosage: 100 MG, QD (NORMALLY NEED TO TAKE ONCE A DAY, CAN GET MIGRAINES THREE TIMES A WEEK)
  2. NURTEC ODT [Suspect]
     Active Substance: RIMEGEPANT SULFATE
     Indication: Migraine
     Dosage: 75 MG, QD (75MG TAKEN ONCE A DAY)
     Dates: start: 20230428

REACTIONS (3)
  - Temporomandibular joint syndrome [Unknown]
  - Incorrect dose administered [Unknown]
  - Product dose omission issue [Unknown]

NARRATIVE: CASE EVENT DATE: 20230109
